FAERS Safety Report 11157232 (Version 2)
Quarter: 2015Q2

REPORT INFORMATION
  Report Type: Spontaneous
  Country: BE (occurrence: BE)
  Receive Date: 20150602
  Receipt Date: 20150604
  Transmission Date: 20150821
  Serious: Yes (Other)
  Sender: FDA-Public Use
  Company Number: BE-009507513-1411BEL011237

PATIENT
  Age: 39 Year
  Sex: Female
  Weight: 69 kg

DRUGS (1)
  1. IMPLANON [Suspect]
     Active Substance: ETONOGESTREL
     Dosage: IMPLANT WAS INSERTED INTO A VEIN
     Route: 042

REACTIONS (6)
  - Device dislocation [Unknown]
  - Medical device complication [Not Recovered/Not Resolved]
  - Phlebitis [Unknown]
  - Incorrect route of drug administration [Unknown]
  - Fibrosis [Unknown]
  - Device difficult to use [Unknown]

NARRATIVE: CASE EVENT DATE: 2014
